FAERS Safety Report 10611298 (Version 1)
Quarter: 2014Q4

REPORT INFORMATION
  Report Type: Spontaneous
  Country: GR (occurrence: None)
  Receive Date: 20141124
  Receipt Date: 20141124
  Transmission Date: 20150529
  Serious: Yes (Hospitalization)
  Sender: FDA-Public Use
  Company Number: GR-ZYDUS-005606

PATIENT
  Age: 59 Year
  Sex: Male

DRUGS (6)
  1. TELMISARTAN W/HYDROCHLOROTHIAZIDE [Suspect]
     Active Substance: HYDROCHLOROTHIAZIDE\TELMISARTAN
  2. ASPIRIN (ASPIRIN) [Suspect]
     Active Substance: ASPIRIN
  3. CARVEDILOL (CARVEDILOL) [Suspect]
     Active Substance: CARVEDILOL
  4. SPIRONOLACTONE (SPIRONOLACTONE) [Suspect]
     Active Substance: SPIRONOLACTONE
     Dosage: 1.0DAYS
  5. CLOPIDOGREL [Concomitant]
     Active Substance: CLOPIDOGREL BISULFATE
  6. DICLOFENAC (DICLOFENAC) [Suspect]
     Active Substance: DICLOFENAC SODIUM
     Indication: BACK PAIN
     Dosage: 1.0DAYS

REACTIONS (2)
  - Renal failure [None]
  - Metabolic acidosis [None]
